FAERS Safety Report 9117074 (Version 1)
Quarter: 2013Q1

REPORT INFORMATION
  Report Type: Spontaneous
  Country: US (occurrence: US)
  Receive Date: 20130208
  Receipt Date: 20130208
  Transmission Date: 20140127
  Serious: Yes (Hospitalization)
  Sender: FDA-Public Use
  Company Number: US-BAYER-2013-015011

PATIENT
  Age: 26 Year
  Sex: Female

DRUGS (9)
  1. YAZ [Suspect]
  2. GIANVI [Suspect]
  3. BACTRIM [Concomitant]
  4. RELPAX [Concomitant]
  5. AZITHROMYCIN [Concomitant]
  6. CIPROFLOXACIN HYDROCHLORIDE [Concomitant]
  7. NITROFURANTOIN MONOMACRO [Concomitant]
  8. MINOCYCLINE [Concomitant]
  9. LIPITOR [Concomitant]

REACTIONS (1)
  - Cerebrovascular accident [None]
